FAERS Safety Report 7276251-8 (Version None)
Quarter: 2010Q4

REPORT INFORMATION
  Report Type: 
  Country: None (occurrence: None)
  Receive Date: 20101206
  Receipt Date: 20100820
  Transmission Date: 20110411
  Serious: No
  Sender: FDA-Public Use
  Company Number: 2010SP045103

PATIENT
  Age: 52 Year
  Sex: Female

DRUGS (9)
  1. SAPHRIS [Suspect]
     Indication: BIPOLAR DISORDER
     Dosage: 5 MG;BID;SL
     Route: 060
     Dates: start: 20100812, end: 20100813
  2. SAPHRIS [Suspect]
     Indication: SLEEP DISORDER
     Dosage: 5 MG;BID;SL
     Route: 060
     Dates: start: 20100812, end: 20100813
  3. GEODAN (GEODON) [Concomitant]
  4. XANEX (XANAX) [Concomitant]
  5. LUNESTA [Concomitant]
  6. ZINC [Concomitant]
  7. MAGNESIUM [Concomitant]
  8. LIPITOR [Concomitant]
  9. PROTONIX [Concomitant]

REACTIONS (11)
  - BOWEL MOVEMENT IRREGULARITY [None]
  - DRUG HYPERSENSITIVITY [None]
  - DYSARTHRIA [None]
  - DYSPNOEA [None]
  - EYE ROLLING [None]
  - FEELING HOT [None]
  - HUNGER [None]
  - INAPPROPRIATE SCHEDULE OF DRUG ADMINISTRATION [None]
  - MALAISE [None]
  - MEMORY IMPAIRMENT [None]
  - VOMITING [None]
